FAERS Safety Report 7530927-3 (Version None)
Quarter: 2011Q2

REPORT INFORMATION
  Report Type: 
  Country: None (occurrence: None)
  Receive Date: 20110608
  Receipt Date: 20110527
  Transmission Date: 20111010
  Serious: Yes (Death, Hospitalization, Other)
  Sender: FDA-Public Use
  Company Number: CA-ELI_LILLY_AND_COMPANY-CA201105007962

PATIENT
  Sex: Male

DRUGS (8)
  1. FLURAZEPAM [Concomitant]
  2. CLONAZEPAM [Concomitant]
  3. TEMAZEPAM [Concomitant]
  4. ZYPREXA [Suspect]
     Dosage: 10 MG, UNK
  5. ZYPREXA [Suspect]
     Dosage: 2.5 MG, UNK
  6. ZYPREXA [Suspect]
     Indication: SCHIZOPHRENIA
     Dosage: 15 MG, EACH EVENING
     Dates: start: 19990901
  7. SEROQUEL [Concomitant]
  8. ZYPREXA [Suspect]
     Dosage: 5 MG, UNK

REACTIONS (11)
  - HYPERTENSION [None]
  - DEATH [None]
  - DIABETES MELLITUS [None]
  - HYPERGLYCAEMIA [None]
  - DYSLIPIDAEMIA [None]
  - SEPSIS [None]
  - RESPIRATORY FAILURE [None]
  - SYNCOPE [None]
  - MYOCARDIAL INFARCTION [None]
  - PNEUMONIA [None]
  - GLAUCOMA [None]
